FAERS Safety Report 10183773 (Version 1)
Quarter: 2014Q2

REPORT INFORMATION
  Report Type: Spontaneous
  Country: US (occurrence: US)
  Receive Date: 20140520
  Receipt Date: 20140520
  Transmission Date: 20141212
  Serious: No
  Sender: FDA-Public Use
  Company Number: US-TEVA-482814USA

PATIENT
  Age: 30 Year
  Sex: Female
  Weight: 68.1 kg

DRUGS (2)
  1. PARAGARD 380A [Suspect]
     Indication: CONTRACEPTION
     Route: 015
     Dates: start: 20140511
  2. IRON [Concomitant]
     Indication: ANAEMIA

REACTIONS (2)
  - Abdominal distension [Recovered/Resolved]
  - Pelvic pain [Recovered/Resolved]
